FAERS Safety Report 5222256-8 (Version None)
Quarter: 2007Q1

REPORT INFORMATION
  Report Type: 
  Country: None (occurrence: None)
  Receive Date: 20070129
  Receipt Date: 20070116
  Transmission Date: 20070707
  Serious: Yes (Hospitalization)
  Sender: FDA-Public Use
  Company Number: AT-AVENTIS-200710407EU

PATIENT
  Age: 80 Year
  Sex: Female

DRUGS (1)
  1. LOVENOX [Suspect]
     Indication: LOWER LIMB FRACTURE
     Dates: start: 20061201

REACTIONS (2)
  - EXTREMITY NECROSIS [None]
  - VASOSPASM [None]
